FAERS Safety Report 7950046-1 (Version None)
Quarter: 2011Q4

REPORT INFORMATION
  Report Type: 
  Country: None (occurrence: None)
  Receive Date: 20111130
  Receipt Date: 20111109
  Transmission Date: 20120403
  Serious: Yes (Other)
  Sender: FDA-Public Use
  Company Number: ES-EISAI INC-E7389-01769-SPO-ES

PATIENT
  Age: 48 Year
  Sex: Female

DRUGS (1)
  1. HALAVEN [Suspect]
     Dosage: UNKNOWN
     Route: 041
     Dates: start: 20111001, end: 20111101

REACTIONS (2)
  - NEOPLASM MALIGNANT [None]
  - BACTERAEMIA [None]
